FAERS Safety Report 11239269 (Version 1)
Quarter: 2015Q3

REPORT INFORMATION
  Report Type: Spontaneous
  Country: US (occurrence: US)
  Receive Date: 20150706
  Receipt Date: 20150706
  Transmission Date: 20151125
  Serious: No
  Sender: FDA-Public Use
  Company Number: US-BIOGENIDEC-2015BI092303

PATIENT
  Age: 39 Year
  Sex: Female

DRUGS (1)
  1. AVONEX [Suspect]
     Active Substance: INTERFERON BETA-1A
     Indication: MULTIPLE SCLEROSIS
     Route: 030
     Dates: start: 200406

REACTIONS (9)
  - Headache [Unknown]
  - Myalgia [Unknown]
  - Nausea [Unknown]
  - Aphasia [Unknown]
  - Pyrexia [Unknown]
  - Blood triglycerides increased [Unknown]
  - Neck pain [Unknown]
  - Speech disorder [Unknown]
  - Pain [Unknown]
